FAERS Safety Report 7288543-7 (Version None)
Quarter: 2011Q1

REPORT INFORMATION
  Report Type: 
  Country: None (occurrence: None)
  Receive Date: 20110211
  Receipt Date: 20110201
  Transmission Date: 20110831
  Serious: Yes (Other)
  Sender: FDA-Public Use
  Company Number: JP-JNJFOC-20110201564

PATIENT
  Age: 42 Year
  Sex: Female

DRUGS (5)
  1. INFLIXIMAB, RECOMBINANT [Suspect]
     Indication: BEHCET'S SYNDROME
     Route: 042
  2. CYCLOSPORINE [Concomitant]
  3. INFLIXIMAB, RECOMBINANT [Suspect]
     Dosage: 10TH INFUSION
     Route: 042
  4. INFLIXIMAB, RECOMBINANT [Suspect]
     Dosage: 9TH INFUSION
     Route: 042
  5. DEXCHLORPHENIRAMINE MALEATE [Concomitant]
     Indication: PREMEDICATION

REACTIONS (5)
  - INFUSION RELATED REACTION [None]
  - HYPOXIA [None]
  - HYPOTENSION [None]
  - DYSPNOEA [None]
  - ANAPHYLACTOID REACTION [None]
